FAERS Safety Report 10975385 (Version 1)
Quarter: 2015Q2

REPORT INFORMATION
  Report Type: Spontaneous
  Country: GR (occurrence: GR)
  Receive Date: 20150401
  Receipt Date: 20150401
  Transmission Date: 20150821
  Serious: Yes (Other)
  Sender: FDA-Public Use
  Company Number: GR-GLAXOSMITHKLINE-GR2015GSK041685

PATIENT
  Age: 43 Year
  Sex: Male

DRUGS (3)
  1. AMOXICILLIN. [Suspect]
     Active Substance: AMOXICILLIN
     Indication: ALLERGY TEST
     Dosage: 20 MG/ML
  2. AMPICILLIN [Suspect]
     Active Substance: AMPICILLIN
     Indication: ALLERGY TEST
     Dosage: 20 MG/ML
  3. CEFUROXIME. [Suspect]
     Active Substance: CEFUROXIME
     Indication: ALLERGY TEST
     Dosage: UNK

REACTIONS (13)
  - Tachycardia [Recovered/Resolved]
  - Dyspnoea [Recovered/Resolved]
  - Urticaria [Unknown]
  - Dysphagia [Recovered/Resolved]
  - Anaphylactic reaction [Recovered/Resolved]
  - Loss of consciousness [Recovered/Resolved]
  - Skin test [Unknown]
  - Abdominal pain upper [Recovered/Resolved]
  - Dizziness [Recovered/Resolved]
  - Throat irritation [Recovered/Resolved]
  - Conjunctivitis [Recovered/Resolved]
  - Generalised erythema [Recovered/Resolved]
  - Abdominal pain [Unknown]
